FAERS Safety Report 7737124-7 (Version None)
Quarter: 2011Q3

REPORT INFORMATION
  Report Type: 
  Country: None (occurrence: None)
  Receive Date: 20110908
  Receipt Date: 20110902
  Transmission Date: 20111222
  Serious: Yes (Life-Threatening, Hospitalization)
  Sender: FDA-Public Use
  Company Number: JP-ROCHE-705278

PATIENT
  Sex: Male

DRUGS (16)
  1. TOCILIZUMAB [Suspect]
     Route: 041
     Dates: start: 20091016, end: 20091113
  2. PREDNISOLONE [Suspect]
     Indication: JUVENILE ARTHRITIS
     Dosage: DOSE FORM PERORAL AGENT
     Route: 048
  3. METHOTREXATE [Suspect]
     Indication: JUVENILE ARTHRITIS
     Route: 048
     Dates: start: 20100701, end: 20100916
  4. SULFAMETHOXAZOLE AND TRIMETHOPRIM [Suspect]
     Indication: PNEUMOCYSTIS JIROVECI PNEUMONIA
     Dosage: DOSE FORM: PERORAL AGENT
     Route: 048
     Dates: start: 20100914, end: 20100928
  5. TOCILIZUMAB [Suspect]
     Indication: JUVENILE ARTHRITIS
     Route: 041
     Dates: start: 20090925, end: 20090925
  6. FAMOTIDINE [Concomitant]
     Dosage: DOSE FORM: PERORAL AGENT
     Route: 048
  7. TOCILIZUMAB [Suspect]
     Route: 041
     Dates: start: 20100831, end: 20100907
  8. PREDNISOLONE [Suspect]
     Dosage: DOSE FORM: PERORAL AGENT
     Route: 048
     Dates: end: 20100906
  9. PREDNISOLONE [Suspect]
     Dosage: DOSE FORM PERORAL AGENT
     Route: 048
     Dates: start: 20100928, end: 20101026
  10. PREDNISOLONE [Suspect]
     Dosage: DOSE FORM PERORAL AGENT
     Route: 048
     Dates: start: 20101027
  11. NAPROXEN [Concomitant]
     Dosage: DOSE FORM: PERORAL AGENT
     Route: 048
  12. TOCILIZUMAB [Suspect]
     Dosage: DISCONTINUED
     Route: 041
     Dates: start: 20091204, end: 20091204
  13. PREDNISOLONE [Suspect]
     Dosage: DOSE FORM PERORAL AGENT
     Route: 048
     Dates: start: 20100907, end: 20100915
  14. FERRIC PYROPHOSPHATE [Concomitant]
     Dosage: DRUG: INCREMIN(FERRIC PYROPHOSPHATE,SOLUBLE)
     Route: 048
  15. TOCILIZUMAB [Suspect]
     Route: 041
     Dates: start: 20100811, end: 20100823
  16. CYCLOSPORINE [Suspect]
     Indication: JUVENILE ARTHRITIS
     Dosage: DOSE FORM: PERORAL AGENT
     Route: 048

REACTIONS (11)
  - WHITE BLOOD CELL COUNT INCREASED [None]
  - PROTEIN URINE PRESENT [None]
  - CEREBRAL HAEMORRHAGE [None]
  - PYREXIA [None]
  - BETA-N-ACETYL-D-GLUCOSAMINIDASE INCREASED [None]
  - RED BLOOD CELLS URINE POSITIVE [None]
  - HISTIOCYTOSIS HAEMATOPHAGIC [None]
  - PNEUMOCYSTIS JIROVECI PNEUMONIA [None]
  - INFUSION RELATED REACTION [None]
  - BONE MARROW FAILURE [None]
  - CHILLS [None]
